FAERS Safety Report 19069434 (Version 1)
Quarter: 2021Q1

REPORT INFORMATION
  Report Type: Spontaneous
  Country: US (occurrence: US)
  Receive Date: 20210329
  Receipt Date: 20210329
  Transmission Date: 20210420
  Serious: Yes (Other)
  Sender: FDA-Public Use
  Company Number: None

PATIENT
  Age: 62 Year
  Sex: Male
  Weight: 86.18 kg

DRUGS (1)
  1. BAMLANIVIMAB. [Suspect]
     Active Substance: BAMLANIVIMAB
     Indication: SARS-COV-2 TEST POSITIVE
     Route: 041
     Dates: start: 20210329, end: 20210329

REACTIONS (4)
  - Presyncope [None]
  - Hyperhidrosis [None]
  - Loss of consciousness [None]
  - Pallor [None]

NARRATIVE: CASE EVENT DATE: 20210329
